FAERS Safety Report 5181184-7 (Version None)
Quarter: 2006Q4

REPORT INFORMATION
  Report Type: 
  Country: None (occurrence: None)
  Receive Date: 20061220
  Receipt Date: 20051102
  Transmission Date: 20070319
  Serious: No
  Sender: FDA-Public Use
  Company Number: US-GLAXOSMITHKLINE-A0580568A

PATIENT
  Age: 32 Year
  Sex: Female

DRUGS (1)
  1. COMMIT [Suspect]
     Dates: start: 20051102

REACTIONS (3)
  - HICCUPS [None]
  - ODYNOPHAGIA [None]
  - THROAT IRRITATION [None]
